FAERS Safety Report 19287311 (Version 1)
Quarter: 2021Q2

REPORT INFORMATION
  Report Type: Other
  Country: PL (occurrence: PL)
  Receive Date: 20210522
  Receipt Date: 20210522
  Transmission Date: 20210717
  Serious: Yes (Hospitalization)
  Sender: FDA-Public Use
  Company Number: PL-MACLEODS PHARMA UK LTD-MAC2021031181

PATIENT

DRUGS (13)
  1. BISOPROLOL [Suspect]
     Active Substance: BISOPROLOL
     Indication: CORONARY ARTERY DISEASE
     Dosage: 7.5 MILLIGRAM
     Route: 065
  2. RAMIPRIL. [Suspect]
     Active Substance: RAMIPRIL
     Indication: CARDIAC FAILURE
     Dosage: 10 MILLIGRAM
     Route: 065
  3. ROSUVASTATIN 40 MG [Suspect]
     Active Substance: ROSUVASTATIN
     Indication: CAROTID ARTERIOSCLEROSIS
  4. ROSUVASTATIN 40 MG [Suspect]
     Active Substance: ROSUVASTATIN
     Indication: HYPERTENSION
     Dosage: 40 MILLIGRAM
     Route: 065
  5. RAMIPRIL. [Suspect]
     Active Substance: RAMIPRIL
     Indication: CORONARY ARTERY DISEASE
  6. ASPIRIN. [Suspect]
     Active Substance: ASPIRIN
     Indication: CAROTID ARTERIOSCLEROSIS
  7. CLOPIDOGREL [Concomitant]
     Active Substance: CLOPIDOGREL BISULFATE
     Indication: POSTOPERATIVE CARE
     Dosage: 75 MILLIGRAM
     Route: 065
  8. ASPIRIN. [Suspect]
     Active Substance: ASPIRIN
     Indication: HYPERTENSION
     Dosage: 75 MILLIGRAM
     Route: 065
  9. PANTOPRAZOLE 40 MG [Suspect]
     Active Substance: PANTOPRAZOLE SODIUM
     Indication: HELICOBACTER GASTRITIS
     Dosage: 40 MILLIGRAM, BID
     Route: 065
  10. ASPIRIN. [Suspect]
     Active Substance: ASPIRIN
     Indication: POSTOPERATIVE CARE
  11. BISOPROLOL [Suspect]
     Active Substance: BISOPROLOL
     Indication: CARDIAC FAILURE
  12. AMLODIPINE/RAMIPRIL [Suspect]
     Active Substance: AMLODIPINE\RAMIPRIL
     Indication: PRODUCT USED FOR UNKNOWN INDICATION
     Dosage: UNK
     Route: 065
  13. ESOMEPRAZOLE. [Concomitant]
     Active Substance: ESOMEPRAZOLE MAGNESIUM
     Indication: RENAL FAILURE
     Dosage: 20 MILLIGRAM
     Route: 065

REACTIONS (28)
  - Left ventricular hypertrophy [Unknown]
  - Tricuspid valve incompetence [Unknown]
  - Asthenia [Unknown]
  - Ventricular hypokinesia [Unknown]
  - Anaemia macrocytic [Unknown]
  - Cardiac failure [Unknown]
  - Palpitations [Unknown]
  - Angiopathy [Unknown]
  - Ejection fraction decreased [Unknown]
  - Chronic kidney disease [Unknown]
  - Rales [Unknown]
  - Coronary artery disease [Unknown]
  - Electrocardiogram Q wave abnormal [Unknown]
  - Occult blood [Unknown]
  - Helicobacter gastritis [Unknown]
  - Aortic valve incompetence [Unknown]
  - Acute kidney injury [Unknown]
  - Acute myocardial infarction [Unknown]
  - Systolic dysfunction [Unknown]
  - Diastolic dysfunction [Unknown]
  - Mitral valve incompetence [Unknown]
  - Oedema peripheral [Unknown]
  - Carotid arteriosclerosis [Unknown]
  - Dyspnoea at rest [Unknown]
  - Pericardial effusion [Unknown]
  - Hyperlipidaemia [Unknown]
  - Hepatojugular reflux [Unknown]
  - Carotid artery stenosis [Unknown]

NARRATIVE: CASE EVENT DATE: 20190918
